FAERS Safety Report 17251540 (Version 2)
Quarter: 2020Q1

REPORT INFORMATION
  Report Type: Report from Study
  Country: GB (occurrence: GB)
  Receive Date: 20200109
  Receipt Date: 20200123
  Transmission Date: 20200409
  Serious: Yes (Hospitalization, Other)
  Sender: FDA-Public Use
  Company Number: GB-SAMSUNG BIOEPIS-SB-2020-00365

PATIENT
  Age: 48 Year
  Sex: Female

DRUGS (1)
  1. IMRALDI [Suspect]
     Active Substance: ADALIMUMAB
     Indication: RHEUMATOID ARTHRITIS
     Route: 058
     Dates: start: 20191028

REACTIONS (7)
  - Cerebrovascular accident [Unknown]
  - Hepatectomy [Recovering/Resolving]
  - Infection [Unknown]
  - Paraesthesia [Unknown]
  - Cholelithiasis [Recovering/Resolving]
  - Nephrolithiasis [Recovering/Resolving]
  - Hypoaesthesia oral [Unknown]

NARRATIVE: CASE EVENT DATE: 20191229
